FAERS Safety Report 7072222-5 (Version None)
Quarter: 2010Q4

REPORT INFORMATION
  Report Type: 
  Country: None (occurrence: None)
  Receive Date: 20101029
  Receipt Date: 20100208
  Transmission Date: 20110411
  Serious: No
  Sender: FDA-Public Use
  Company Number: A0836428A

PATIENT
  Age: 81 Year
  Sex: Female

DRUGS (7)
  1. ADVAIR DISKUS 100/50 [Suspect]
     Indication: ASTHMA
     Dosage: 1PUFF PER DAY
     Route: 055
  2. DIGOXIN [Concomitant]
  3. RYTHMOL [Concomitant]
  4. DIOVAN [Concomitant]
  5. THYROID MEDICATION [Concomitant]
  6. PANDEMIC VACCINE H1N1 UNSPECIFIED [Concomitant]
  7. XOPENEX [Concomitant]

REACTIONS (2)
  - DRUG INEFFECTIVE [None]
  - PRODUCT QUALITY ISSUE [None]
